FAERS Safety Report 20660175 (Version 4)
Quarter: 2023Q4

REPORT INFORMATION
  Report Type: Report from Study
  Country: US (occurrence: US)
  Receive Date: 20220331
  Receipt Date: 20231219
  Transmission Date: 20240110
  Serious: Yes (Hospitalization, Other)
  Sender: FDA-Public Use
  Company Number: US-KOREA IPSEN Pharma-2022-08603

PATIENT
  Age: 74 Year
  Sex: Male

DRUGS (1)
  1. SOMATULINE DEPOT [Suspect]
     Active Substance: LANREOTIDE ACETATE
     Indication: Neuroendocrine tumour
     Dosage: DOSE: 120 MG/ 0.5 ML
     Route: 058
     Dates: start: 202202

REACTIONS (9)
  - Constipation [Recovered/Resolved]
  - Abdominal pain [Recovered/Resolved]
  - Musculoskeletal chest pain [Recovered/Resolved]
  - Pulmonary congestion [Recovering/Resolving]
  - Prostate cancer [Not Recovered/Not Resolved]
  - Pain [Recovering/Resolving]
  - Abdominal pain [Recovering/Resolving]
  - Anxiety [Not Recovered/Not Resolved]
  - Chest pain [Not Recovered/Not Resolved]

NARRATIVE: CASE EVENT DATE: 20220321
